FAERS Safety Report 14229757 (Version 1)
Quarter: 2017Q4

REPORT INFORMATION
  Report Type: Spontaneous
  Country: US (occurrence: None)
  Receive Date: 20171128
  Receipt Date: 20171128
  Transmission Date: 20180321
  Serious: Yes (Disabling, Other)
  Sender: FDA-Public Use
  Company Number: None

PATIENT
  Age: 72 Year
  Sex: Female
  Weight: 79.83 kg

DRUGS (9)
  1. LEVOTHYROXIN [Concomitant]
     Active Substance: LEVOTHYROXINE
  2. VITAMIN D (2000) [Concomitant]
  3. PRAVASTATIN. [Concomitant]
     Active Substance: PRAVASTATIN
  4. BALANCED B 100 [Concomitant]
  5. XANAX [Concomitant]
     Active Substance: ALPRAZOLAM
  6. DEPAKOTE [Concomitant]
     Active Substance: DIVALPROEX SODIUM
  7. ATENOLOL. [Concomitant]
     Active Substance: ATENOLOL
  8. PANTOPRAZOLE SODIUM. [Concomitant]
     Active Substance: PANTOPRAZOLE SODIUM
  9. FARXIGA [Suspect]
     Active Substance: DAPAGLIFLOZIN PROPANEDIOL
     Indication: TYPE 2 DIABETES MELLITUS
     Dosage: 1 PILL 1 X DAILY BY MOUTH
     Route: 048
     Dates: start: 20171025, end: 20171104

REACTIONS (3)
  - Drug effect decreased [None]
  - Fungal infection [None]
  - Urinary tract infection [None]

NARRATIVE: CASE EVENT DATE: 20171105
